FAERS Safety Report 14870308 (Version 1)
Quarter: 2018Q2

REPORT INFORMATION
  Report Type: Spontaneous
  Country: US (occurrence: US)
  Receive Date: 20180509
  Receipt Date: 20180509
  Transmission Date: 20180711
  Serious: No
  Sender: FDA-Public Use
  Company Number: US-SA-2018SA104942

PATIENT
  Age: 77 Year
  Sex: Female

DRUGS (4)
  1. XYZAL ALLERGY 24HR [Suspect]
     Active Substance: LEVOCETIRIZINE DIHYDROCHLORIDE
     Indication: SEASONAL ALLERGY
     Route: 048
     Dates: start: 20180404, end: 20180406
  2. CLARITINE [Concomitant]
     Active Substance: LORATADINE
     Route: 065
     Dates: start: 1993
  3. ARMOUR THYROID [Concomitant]
     Active Substance: THYROID, PORCINE
     Route: 065
     Dates: start: 1993
  4. ALLEGRA [Concomitant]
     Active Substance: FEXOFENADINE HYDROCHLORIDE
     Route: 065
     Dates: start: 2013

REACTIONS (1)
  - Dysuria [Recovered/Resolved]
